FAERS Safety Report 23687617 (Version 1)
Quarter: 2024Q1

REPORT INFORMATION
  Report Type: Report from Study
  Country: PH (occurrence: PH)
  Receive Date: 20240329
  Receipt Date: 20240329
  Transmission Date: 20240410
  Serious: Yes (Death)
  Sender: FDA-Public Use
  Company Number: PH-OTSUKA-2024_008411

PATIENT
  Age: 75 Year
  Sex: Female

DRUGS (1)
  1. TOLVAPTAN [Suspect]
     Active Substance: TOLVAPTAN
     Indication: Product used for unknown indication
     Dosage: 0.5 DF, QD (15 MG HALF TABLET A DAY)
     Route: 048
     Dates: start: 202310

REACTIONS (3)
  - Death [Fatal]
  - Underdose [Fatal]
  - Wrong technique in product usage process [Fatal]

NARRATIVE: CASE EVENT DATE: 20231001
